FAERS Safety Report 23111854 (Version 1)
Quarter: 2023Q4

REPORT INFORMATION
  Report Type: Spontaneous
  Country: US (occurrence: US)
  Receive Date: 20231026
  Receipt Date: 20231026
  Transmission Date: 20240110
  Serious: Yes (Death)
  Sender: FDA-Public Use
  Company Number: US-JNJFOC-20231061999

PATIENT
  Age: 61 Year
  Sex: Male

DRUGS (1)
  1. ACETAMINOPHEN [Suspect]
     Active Substance: ACETAMINOPHEN
     Indication: Product used for unknown indication
     Route: 065

REACTIONS (10)
  - Toxicity to various agents [Fatal]
  - Anion gap [Fatal]
  - Acute kidney injury [Fatal]
  - Coagulopathy [Fatal]
  - Hepatotoxicity [Fatal]
  - Hypotension [Fatal]
  - Haemolysis [Fatal]
  - Jaundice [Fatal]
  - Metabolic acidosis [Fatal]
  - Electrocardiogram QT prolonged [Fatal]
